FAERS Safety Report 6337340-5 (Version None)
Quarter: 2009Q3

REPORT INFORMATION
  Report Type: 
  Country: None (occurrence: None)
  Receive Date: 20090828
  Receipt Date: 20090828
  Transmission Date: 20100115
  Serious: No
  Sender: FDA-Public Use
  Company Number: None

PATIENT
  Age: 61 Year
  Sex: Female
  Weight: 56.6996 kg

DRUGS (1)
  1. LEVAQUIN [Suspect]
     Indication: SINUSITIS
     Dosage: 500 MG 1 EVERY 24 HOURS PO
     Route: 048
     Dates: start: 20090824, end: 20090827

REACTIONS (3)
  - FEAR [None]
  - INSOMNIA [None]
  - NIGHTMARE [None]
